FAERS Safety Report 12994974 (Version 1)
Quarter: 2016Q4

REPORT INFORMATION
  Report Type: Spontaneous
  Country: US (occurrence: US)
  Receive Date: 20161202
  Receipt Date: 20161202
  Transmission Date: 20170207
  Serious: Yes (Death)
  Sender: FDA-Public Use
  Company Number: US-SAGENTPRD-2016-US-000074

PATIENT
  Age: 54 Year
  Sex: Female

DRUGS (4)
  1. IRINOTECAN [Concomitant]
     Active Substance: IRINOTECAN
  2. LEUCOVORIN CALCIUM FOR INJECTION [Suspect]
     Active Substance: LEUCOVORIN CALCIUM
     Dosage: 200 MG/M^2
  3. FLUOROURACIL. [Concomitant]
     Active Substance: FLUOROURACIL
  4. AFLIBERCEPT [Concomitant]
     Active Substance: AFLIBERCEPT

REACTIONS (1)
  - Palmar-plantar erythrodysaesthesia syndrome [Fatal]
